FAERS Safety Report 24856857 (Version 1)
Quarter: 2025Q1

REPORT INFORMATION
  Report Type: Spontaneous
  Country: EU (occurrence: EU)
  Receive Date: 20250117
  Receipt Date: 20250117
  Transmission Date: 20250409
  Serious: Yes (Hospitalization, Other)
  Sender: UNITED THERAPEUTICS
  Company Number: None

PATIENT
  Age: 11 Day

DRUGS (1)
  1. TREPROSTINIL SODIUM [Suspect]
     Active Substance: TREPROSTINIL SODIUM
     Indication: Pulmonary arterial hypertension
     Route: 041

REACTIONS (3)
  - Pulmonary arterial hypertension [Recovering/Resolving]
  - Underdose [Recovering/Resolving]
  - Drug ineffective [Recovering/Resolving]
